FAERS Safety Report 24551000 (Version 1)
Quarter: 2024Q4

REPORT INFORMATION
  Report Type: Spontaneous
  Country: US (occurrence: US)
  Receive Date: 20241025
  Receipt Date: 20241025
  Transmission Date: 20250114
  Serious: No
  Sender: BRISTOL-MYERS SQUIBB COMPANY
  Company Number: US-BRISTOL-MYERS SQUIBB COMPANY-2024-167578

PATIENT
  Age: 37 Year
  Sex: Female
  Weight: 54.43 kg

DRUGS (2)
  1. KENALOG [Suspect]
     Active Substance: TRIAMCINOLONE ACETONIDE
     Indication: Seasonal allergy
     Route: 030
     Dates: start: 2022
  2. PROZAC [Concomitant]
     Active Substance: FLUOXETINE HYDROCHLORIDE
     Indication: Product used for unknown indication

REACTIONS (9)
  - Contusion [Unknown]
  - Myalgia [Unknown]
  - Muscle atrophy [Unknown]
  - Injection site atrophy [Unknown]
  - Arthralgia [Unknown]
  - Sciatica [Unknown]
  - Skin atrophy [Unknown]
  - Neuralgia [Unknown]
  - Skin disorder [Unknown]

NARRATIVE: CASE EVENT DATE: 20230601
